FAERS Safety Report 5157995-0 (Version None)
Quarter: 2006Q4

REPORT INFORMATION
  Report Type: 
  Country: None (occurrence: None)
  Receive Date: 20061127
  Receipt Date: 20061113
  Transmission Date: 20070319
  Serious: Yes (Other)
  Sender: FDA-Public Use
  Company Number: UG-BOEHRINGER INGELHEIM PHARMACEUTICALS, INC.-2006-DE-06007GD

PATIENT
  Sex: Female

DRUGS (3)
  1. NEVIRAPINE [Suspect]
     Indication: ACUTE HIV INFECTION
  2. ZIDOVUDINE [Suspect]
     Indication: ACUTE HIV INFECTION
  3. EPIVIR [Suspect]
     Indication: ACUTE HIV INFECTION

REACTIONS (4)
  - HEPATITIS [None]
  - MALARIA [None]
  - RASH [None]
  - TUBERCULOSIS [None]
